FAERS Safety Report 15340719 (Version 3)
Quarter: 2018Q3

REPORT INFORMATION
  Report Type: Spontaneous
  Country: JP (occurrence: JP)
  Receive Date: 20180831
  Receipt Date: 20180928
  Transmission Date: 20181010
  Serious: Yes (Other)
  Sender: FDA-Public Use
  Company Number: JP-009507513-1808JPN001993

PATIENT
  Sex: Female

DRUGS (17)
  1. LOXOPROFEN SODIUM [Concomitant]
     Active Substance: LOXOPROFEN SODIUM
     Dosage: 180 MG, PER DAY AFTER EACH MEAL
     Route: 048
  2. BIOFERMIN (BIFIDOBACTERIUM BIFIDUM) [Concomitant]
     Dosage: 2 G, PER AFTER BREAKFAST AND SUPPER
     Route: 048
  3. TERAMURO [Concomitant]
     Dosage: 1 TABLET PER DAY AFTER BREAKFAST
     Route: 048
  4. TRICHLORMETHIAZIDE [Concomitant]
     Active Substance: TRICHLORMETHIAZIDE
     Dosage: 1 MG, PER DAY AFTER BREAKFAST
     Route: 048
  5. VITAMIN E NICOTINATE [Concomitant]
     Dosage: 600 MG, PER DAY AFTER EACH MEAL
     Route: 048
  6. REBAMIPIDE [Concomitant]
     Active Substance: REBAMIPIDE
     Dosage: 300 MG, PER DAY AFTER EACH MEAL
     Route: 048
  7. LOXOPROFEN [Concomitant]
     Active Substance: LOXOPROFEN
     Dosage: 3 SHEETS PER DAY
     Route: 061
  8. HERBAL NOS [Concomitant]
     Active Substance: HERBALS
     Dosage: 5 GRAM PER DAY RIGHT BEFORE BREAKFAST AND SUPPER
     Route: 048
  9. LYRICA [Concomitant]
     Active Substance: PREGABALIN
     Dosage: 75 MG, PER DAY AFTER BREAKFAST AND SUPPER
     Route: 048
  10. ALENDRONATE SODIUM. [Suspect]
     Active Substance: ALENDRONATE SODIUM
     Indication: OSTEOPOROSIS
     Dosage: 5 MG, DAILY
     Route: 048
     Dates: start: 20060715, end: 20071106
  11. BENET [Suspect]
     Active Substance: RISEDRONATE SODIUM
     Indication: OSTEOPOROSIS
     Dosage: 75 MG, PER MONTH
     Route: 048
     Dates: start: 20151016, end: 20160802
  12. BAYASPIRIN [Concomitant]
     Active Substance: ASPIRIN
     Dosage: 100 MG, PER DAY AFTER BREAKFAST
     Route: 048
  13. ALENDRONATE SODIUM. [Suspect]
     Active Substance: ALENDRONATE SODIUM
     Indication: OSTEOPOROSIS
     Dosage: 35 MG, PER WEEK
     Route: 048
     Dates: start: 20071107, end: 20141219
  14. EDIROL [Suspect]
     Active Substance: ELDECALCITOL
     Indication: OSTEOPOROSIS
     Dosage: 0.75 MICROGRAM, PER DAY AFTER BREAKFAST
     Route: 048
     Dates: start: 20150604, end: 20150801
  15. ALENDRONATE SODIUM. [Suspect]
     Active Substance: ALENDRONATE SODIUM
     Dosage: 35 MG, PER WEEK
     Route: 048
     Dates: start: 20150604, end: 20150801
  16. ALLOPURINOL. [Concomitant]
     Active Substance: ALLOPURINOL
     Dosage: 100 MG, PER DAY AFTER BREAKFAST
     Route: 048
  17. BISOPROLOL FUMARATE. [Concomitant]
     Active Substance: BISOPROLOL FUMARATE
     Dosage: 5 MG, PER DAY AFTER BREAKFAST
     Route: 048

REACTIONS (2)
  - Osteonecrosis of jaw [Recovered/Resolved]
  - Spinal compression fracture [Unknown]

NARRATIVE: CASE EVENT DATE: 2016
